FAERS Safety Report 8178310-4 (Version None)
Quarter: 2012Q1

REPORT INFORMATION
  Report Type: 
  Country: None (occurrence: None)
  Receive Date: 20120301
  Receipt Date: 20120229
  Transmission Date: 20120608
  Serious: Yes (Other)
  Sender: FDA-Public Use
  Company Number: US-PFIZER INC-2012054430

PATIENT
  Sex: Male
  Weight: 81.633 kg

DRUGS (7)
  1. ACETYLSALICYLIC ACID [Concomitant]
     Dosage: 81 MG, UNK
  2. RAMIPRIL [Concomitant]
     Indication: HYPERTENSION
     Dosage: UNK
  3. LOVAZA [Concomitant]
     Dosage: UNK
  4. LANTUS [Concomitant]
     Indication: TYPE 2 DIABETES MELLITUS
     Dosage: UNK
  5. LIPITOR [Suspect]
     Indication: BLOOD CHOLESTEROL INCREASED
  6. LIPITOR [Suspect]
     Indication: ARTERIOSCLEROSIS
     Dosage: 20 MG, 1X/DAY
     Route: 048
  7. METFORMIN [Concomitant]
     Indication: TYPE 2 DIABETES MELLITUS
     Dosage: UNK

REACTIONS (1)
  - CEREBROVASCULAR ACCIDENT [None]
